FAERS Safety Report 10129496 (Version 2)
Quarter: 2014Q2

REPORT INFORMATION
  Report Type: Report from Study
  Country: GB (occurrence: GB)
  Receive Date: 20140428
  Receipt Date: 20140507
  Transmission Date: 20141212
  Serious: Yes (Death, Other)
  Sender: FDA-Public Use
  Company Number: GB-ROCHE-1384315

PATIENT
  Sex: 0

DRUGS (6)
  1. MYCOPHENOLATE MOFETIL [Suspect]
     Indication: PROPHYLAXIS AGAINST TRANSPLANT REJECTION
     Dosage: UNTIL DAY 35
     Route: 065
  2. TACROLIMUS [Suspect]
     Indication: PROPHYLAXIS AGAINST TRANSPLANT REJECTION
     Dosage: 1MG/DAY FOR 9 MONTHS AND TAPER BETWEEN 9-12 MONTHS
     Route: 065
  3. CYCLOPHOSPHAMIDE [Suspect]
     Indication: PROPHYLAXIS AGAINST TRANSPLANT REJECTION
     Dosage: 14.5 MG/KG (DAYS -6 AND -5)
     Route: 065
  4. CYCLOPHOSPHAMIDE [Suspect]
     Dosage: 50 MG/KG/D (DAY +3 AND +4)
     Route: 065
  5. FLUDARABINE [Suspect]
     Indication: PROPHYLAXIS AGAINST TRANSPLANT REJECTION
     Dosage: DAYS -6 TO -2
     Route: 065
  6. RITUXIMAB [Suspect]
     Indication: PROPHYLAXIS AGAINST TRANSPLANT REJECTION
     Route: 065

REACTIONS (3)
  - Sepsis [Fatal]
  - Guillain-Barre syndrome [Unknown]
  - Cytomegalovirus viraemia [Unknown]
